FAERS Safety Report 5506044-0 (Version None)
Quarter: 2007Q4

REPORT INFORMATION
  Report Type: 
  Country: None (occurrence: None)
  Receive Date: 20071105
  Receipt Date: 20071102
  Transmission Date: 20080405
  Serious: Yes (Death)
  Sender: FDA-Public Use
  Company Number: PHNR2007AU02040

PATIENT
  Age: 32 Year
  Sex: Male

DRUGS (1)
  1. CLOZARIL [Suspect]
     Dosage: 12-450MG DAILY
     Route: 048
     Dates: start: 19990506, end: 20071027

REACTIONS (1)
  - ASPHYXIA [None]
